FAERS Safety Report 9944313 (Version 1)
Quarter: 2014Q1

REPORT INFORMATION
  Report Type: Report from Study
  Country: US (occurrence: US)
  Receive Date: 20140303
  Receipt Date: 20140303
  Transmission Date: 20141002
  Serious: No
  Sender: FDA-Public Use
  Company Number: US-ABBVIE-13P-163-1051345-00

PATIENT
  Age: 41 Year
  Sex: Male

DRUGS (7)
  1. HUMIRA [Suspect]
     Indication: CROHN^S DISEASE
     Dosage: LOADING DOSE
     Route: 058
     Dates: start: 20130117, end: 20130117
  2. HUMIRA [Suspect]
     Dosage: LOADING DOSE
     Dates: start: 20130131, end: 20130131
  3. HUMIRA [Suspect]
     Route: 058
  4. NAPROXEN [Concomitant]
     Indication: BACK PAIN
     Dosage: 2/DAY AS NEEDED
  5. VITAMIN B12 [Concomitant]
     Indication: PRODUCT USED FOR UNKNOWN INDICATION
  6. VITAMIN B [Concomitant]
     Indication: VITAMIN B COMPLEX DEFICIENCY
  7. HEPATITIS B VACCINE [Concomitant]
     Indication: PRODUCT USED FOR UNKNOWN INDICATION
     Dosage: COMPLETED 2 OUT OF 3 INJECTIONS

REACTIONS (1)
  - Injection site pain [Recovered/Resolved]
